FAERS Safety Report 18318080 (Version 1)
Quarter: 2020Q3

REPORT INFORMATION
  Report Type: Spontaneous
  Country: US (occurrence: US)
  Receive Date: 20200928
  Receipt Date: 20200928
  Transmission Date: 20201103
  Serious: No
  Sender: FDA-Public Use
  Company Number: US-PFIZER INC-2020370616

PATIENT
  Age: 65 Year
  Sex: Female

DRUGS (5)
  1. BETADINE [Suspect]
     Active Substance: POVIDONE-IODINE
     Dosage: UNK
  2. IODINE. [Suspect]
     Active Substance: IODINE
     Dosage: UNK
     Route: 061
  3. ERYTHROMYCIN. [Suspect]
     Active Substance: ERYTHROMYCIN
     Dosage: UNK
  4. ZITHROMAX [Suspect]
     Active Substance: AZITHROMYCIN DIHYDRATE
     Dosage: UNK
  5. GADODIAMIDE [Suspect]
     Active Substance: GADODIAMIDE
     Dosage: UNK

REACTIONS (1)
  - Drug hypersensitivity [Unknown]
